FAERS Safety Report 18031096 (Version 1)
Quarter: 2020Q3

REPORT INFORMATION
  Report Type: Spontaneous
  Country: JP (occurrence: JP)
  Receive Date: 20200716
  Receipt Date: 20200716
  Transmission Date: 20201103
  Serious: Yes (Other)
  Sender: FDA-Public Use
  Company Number: JP-ALVOGEN-2020-ALVOGEN-109024

PATIENT
  Age: 5 Year
  Sex: Male

DRUGS (8)
  1. BUSULFAN. [Suspect]
     Active Substance: BUSULFAN
     Indication: NEUROBLASTOMA
     Dosage: 16 TIMES EVERY 6 HOURS
  2. HEPARIN?FRACTION/LOW MOLECULAR WEIGHT HEPARIN [Concomitant]
     Indication: PROPHYLAXIS
     Dosage: INFUSED 1 DAY BEFORE HDCT TO 30 DAYS AFTER STEM CELL RESCUE
  3. MELPHALAN. [Suspect]
     Active Substance: MELPHALAN
     Indication: NEUROBLASTOMA
  4. MELPHALAN. [Suspect]
     Active Substance: MELPHALAN
     Indication: NEUROBLASTOMA
  5. DALTEPARIN SODIUM [Concomitant]
     Active Substance: DALTEPARIN SODIUM
     Indication: PROPHYLAXIS
     Dosage: 75 INTERNATIONAL UNITS/KG/D
  6. ETOPOSIDE. [Suspect]
     Active Substance: ETOPOSIDE
     Indication: NEUROBLASTOMA
  7. GRANULOCYTE COLONY STIMULATING FACTOR [Concomitant]
     Active Substance: GRANULOCYTE COLONY-STIMULATING FACTOR NOS
     Indication: PRODUCT USED FOR UNKNOWN INDICATION
     Dosage: 5 DAYS AFTER THE STEM CELL RESCUE UNTIL THE WBC WAS }1000/MICROLITER
     Route: 042
  8. CARBOPLATIN. [Suspect]
     Active Substance: CARBOPLATIN
     Indication: NEUROBLASTOMA

REACTIONS (1)
  - Gastrointestinal mucosal disorder [Unknown]
